FAERS Safety Report 13768062 (Version 1)
Quarter: 2017Q3

REPORT INFORMATION
  Report Type: Spontaneous
  Country: US (occurrence: US)
  Receive Date: 20170719
  Receipt Date: 20170719
  Transmission Date: 20171127
  Serious: No
  Sender: FDA-Public Use
  Company Number: US-PFIZER INC-2017313941

PATIENT
  Age: 50 Year
  Sex: Female
  Weight: 94.35 kg

DRUGS (2)
  1. GABAPENTIN. [Suspect]
     Active Substance: GABAPENTIN
     Indication: FIBROMYALGIA
     Dosage: UNK, 3-4 TIMES A DAY
     Dates: start: 2015
  2. GABAPENTIN. [Suspect]
     Active Substance: GABAPENTIN
     Indication: NEURALGIA

REACTIONS (3)
  - Drug ineffective for unapproved indication [Unknown]
  - Impaired driving ability [Unknown]
  - Malaise [Unknown]

NARRATIVE: CASE EVENT DATE: 201611
